FAERS Safety Report 18610101 (Version 1)
Quarter: 2020Q4

REPORT INFORMATION
  Report Type: Spontaneous
  Country: PL (occurrence: PL)
  Receive Date: 20201214
  Receipt Date: 20201214
  Transmission Date: 20210114
  Serious: Yes (Death, Other)
  Sender: FDA-Public Use
  Company Number: PL-GLAXOSMITHKLINE-PL2020EME246170

PATIENT
  Age: 68 Year
  Sex: Female

DRUGS (1)
  1. NUCALA [Suspect]
     Active Substance: MEPOLIZUMAB
     Indication: ASTHMA
     Dosage: UNK, Z EVERY 4 WEEKS
     Dates: start: 20190830

REACTIONS (2)
  - COVID-19 [Recovered/Resolved]
  - Respiratory failure [Fatal]

NARRATIVE: CASE EVENT DATE: 20201028
